FAERS Safety Report 16688010 (Version 1)
Quarter: 2019Q4

REPORT INFORMATION
  Report Type: Spontaneous
  Country: US (occurrence: US)
  Receive Date: 20190808
  Receipt Date: 20190808
  Transmission Date: 20200122
  Serious: Yes (Other)
  Sender: FDA-Public Use
  Company Number: None

PATIENT
  Age: 57 Year
  Sex: Female
  Weight: 76 kg

DRUGS (1)
  1. MESNA. [Suspect]
     Active Substance: MESNA
     Route: 041
     Dates: start: 20190803, end: 20190804

REACTIONS (10)
  - Erythema [None]
  - Angioedema [None]
  - Oral pain [None]
  - Dyspnoea [None]
  - Burning sensation [None]
  - Urticaria [None]
  - Oral discomfort [None]
  - Rash maculo-papular [None]
  - Discomfort [None]
  - Infusion related reaction [None]

NARRATIVE: CASE EVENT DATE: 20190804
